FAERS Safety Report 5156581-6 (Version None)
Quarter: 2006Q4

REPORT INFORMATION
  Report Type: 
  Country: None (occurrence: None)
  Receive Date: 20061122
  Receipt Date: 20061116
  Transmission Date: 20070319
  Serious: Yes (Hospitalization)
  Sender: FDA-Public Use
  Company Number: US-BOEHRINGER INGELHEIM PHARMACEUTICALS, INC.-2006-BP-13433BP

PATIENT
  Age: 79 Year
  Sex: Female

DRUGS (4)
  1. SPIRIVA [Suspect]
     Indication: LUNG DISORDER
     Route: 055
     Dates: start: 20040101
  2. BETA BLOCKER [Concomitant]
  3. THYROID TAB [Concomitant]
  4. LIPITOR [Concomitant]

REACTIONS (2)
  - NEPHRECTOMY [None]
  - POLLAKIURIA [None]
